FAERS Safety Report 6019024-6 (Version None)
Quarter: 2008Q4

REPORT INFORMATION
  Report Type: 
  Country: None (occurrence: None)
  Receive Date: 20081221
  Receipt Date: 20081221
  Transmission Date: 20090506
  Serious: Yes (Other)
  Sender: FDA-Public Use
  Company Number: None

PATIENT
  Age: 26 Year
  Sex: Male
  Weight: 86.1834 kg

DRUGS (1)
  1. SEROQUEL [Suspect]
     Indication: SLEEP DISORDER
     Dosage: 25MG ONCE IN THE PM PO
     Route: 048
     Dates: start: 20081014, end: 20081116

REACTIONS (7)
  - ANXIETY [None]
  - DYSKINESIA [None]
  - HYPOPHAGIA [None]
  - IRRITABILITY [None]
  - MUSCLE TWITCHING [None]
  - POOR QUALITY SLEEP [None]
  - STRESS [None]
